FAERS Safety Report 16890239 (Version 1)
Quarter: 2019Q4

REPORT INFORMATION
  Report Type: Spontaneous
  Country: US (occurrence: US)
  Receive Date: 20191007
  Receipt Date: 20191007
  Transmission Date: 20200122
  Serious: No
  Sender: FDA-Public Use
  Company Number: US-ROCHE-2423621

PATIENT
  Sex: Female

DRUGS (1)
  1. OCREVUS [Suspect]
     Active Substance: OCRELIZUMAB
     Indication: MULTIPLE SCLEROSIS
     Dosage: ONGOING; YES
     Route: 042
     Dates: start: 2018

REACTIONS (3)
  - Influenza [Unknown]
  - Herpes zoster [Not Recovered/Not Resolved]
  - Blood immunoglobulin A decreased [Unknown]

NARRATIVE: CASE EVENT DATE: 20190924
